FAERS Safety Report 7732481-X (Version None)
Quarter: 2011Q3

REPORT INFORMATION
  Report Type: 
  Country: None (occurrence: None)
  Receive Date: 20110906
  Receipt Date: 20100809
  Transmission Date: 20111222
  Serious: Yes (Hospitalization)
  Sender: FDA-Public Use
  Company Number: US-MUTUAL PHARMACEUTICAL COMPANY, INC.-2010P1000184

PATIENT
  Sex: Male

DRUGS (15)
  1. BENADRYL [Suspect]
     Route: 042
     Dates: start: 20100601, end: 20100601
  2. TYLENOL-500 [Concomitant]
     Dates: start: 20100617
  3. BENADRYL [Suspect]
     Dates: start: 20100601, end: 20100601
  4. PREDNISONE [Suspect]
     Route: 048
     Dates: start: 20100601
  5. BENADRYL [Suspect]
     Route: 042
     Dates: start: 20100601, end: 20100601
  6. SULFAMETHOXAZOLE AND TRIMETHOPRIM [Suspect]
     Route: 048
     Dates: start: 20100101, end: 20100614
  7. NAPROXEN [Suspect]
     Dates: start: 20100601
  8. PLACEBO [Suspect]
     Indication: THROMBOSIS PROPHYLAXIS
     Dates: start: 20100604, end: 20100616
  9. PLACEBO [Suspect]
     Dates: start: 20100621, end: 20100623
  10. BENADRYL [Suspect]
     Dates: start: 20100601, end: 20100601
  11. APIXABAN [Suspect]
     Indication: THROMBOSIS PROPHYLAXIS
     Dates: start: 20100604, end: 20100616
  12. APIXABAN [Suspect]
     Dates: start: 20100621, end: 20100623
  13. LOVENOX [Suspect]
     Indication: THROMBOSIS PROPHYLAXIS
     Dates: start: 20100604, end: 20100609
  14. ANXIETY MEDICATIONS [Suspect]
     Indication: ANXIETY
     Dates: start: 20100601
  15. ALLOPURINOL [Concomitant]
     Dates: end: 20100601

REACTIONS (14)
  - RASH GENERALISED [None]
  - INSOMNIA [None]
  - PAIN [None]
  - VOMITING [None]
  - RENAL FAILURE ACUTE [None]
  - BLISTER [None]
  - CHILLS [None]
  - NAUSEA [None]
  - TREMOR [None]
  - PRURITUS [None]
  - RASH MORBILLIFORM [None]
  - PYREXIA [None]
  - ANXIETY [None]
  - DIARRHOEA [None]
